FAERS Safety Report 4348552-4 (Version None)
Quarter: 2004Q2

REPORT INFORMATION
  Report Type: 
  Country: None (occurrence: None)
  Receive Date: 20040423
  Receipt Date: 20040415
  Transmission Date: 20050107
  Serious: Yes (Hospitalization)
  Sender: FDA-Public Use
  Company Number: US-JNJFOC-20040404084

PATIENT
  Age: 55 Year
  Sex: Male
  Weight: 103.8737 kg

DRUGS (2)
  1. DURAGESIC [Suspect]
     Indication: PAIN
     Dosage: 75 UG/HR, 1 IN 72 HOUR, TRANSDERMAL
     Route: 062
     Dates: start: 20031101, end: 20040215
  2. VICODIN (VICODIN) TABLETS [Concomitant]

REACTIONS (2)
  - COMA [None]
  - OVERDOSE [None]
